FAERS Safety Report 7751402-7 (Version None)
Quarter: 2011Q3

REPORT INFORMATION
  Report Type: 
  Country: None (occurrence: None)
  Receive Date: 20110914
  Receipt Date: 20110906
  Transmission Date: 20111222
  Serious: Yes (Other)
  Sender: FDA-Public Use
  Company Number: BR-GILEAD-2011-0043610

PATIENT
  Sex: Male

DRUGS (9)
  1. RALTEGRAVIR [Concomitant]
     Indication: HIV INFECTION
     Dates: start: 20110226
  2. ENALAPRIL MALEATE [Concomitant]
     Indication: PROTEINURIA
  3. AMITRIPTYLINE HCL [Concomitant]
     Indication: NEUROPATHY PERIPHERAL
  4. OMEPRAZOLE [Concomitant]
     Indication: HIATUS HERNIA
  5. VITAMIN B6 [Concomitant]
     Indication: PARAESTHESIA
  6. BACTRIM [Concomitant]
     Indication: ANTIFUNGAL PROPHYLAXIS
  7. VIREAD [Suspect]
     Indication: HIV INFECTION
  8. CLONAZEPAM [Concomitant]
     Indication: ANXIETY
  9. COMBIVIR [Suspect]
     Indication: HIV INFECTION
     Dates: start: 20110628

REACTIONS (1)
  - ANAEMIA [None]
